FAERS Safety Report 19376857 (Version 1)
Quarter: 2021Q2

REPORT INFORMATION
  Report Type: Spontaneous
  Country: US (occurrence: US)
  Receive Date: 20210605
  Receipt Date: 20210605
  Transmission Date: 20210717
  Serious: Yes (Other)
  Sender: FDA-Public Use
  Company Number: US-NOVITIUMPHARMA-2021USNVP00053

PATIENT
  Age: 66 Year
  Sex: Female

DRUGS (2)
  1. PREDNISONE TABLETS, USP 10 MG [Suspect]
     Active Substance: PREDNISONE
     Route: 048
  2. PREDNISONE TABLETS, USP 10 MG [Suspect]
     Active Substance: PREDNISONE
     Indication: PRODUCT USED FOR UNKNOWN INDICATION
     Route: 048

REACTIONS (11)
  - Ataxia [Recovering/Resolving]
  - Wrong technique in product usage process [Unknown]
  - Tremor [Recovering/Resolving]
  - Tachycardia [Recovering/Resolving]
  - Product use complaint [Unknown]
  - Incorrect dose administered [Unknown]
  - Dizziness [Recovering/Resolving]
  - Nausea [Recovering/Resolving]
  - Headache [Recovering/Resolving]
  - Confusional state [Recovering/Resolving]
  - Arrhythmia [Recovering/Resolving]

NARRATIVE: CASE EVENT DATE: 20210507
